FAERS Safety Report 20738600 (Version 3)
Quarter: 2022Q2

REPORT INFORMATION
  Report Type: Report from Study
  Country: US (occurrence: US)
  Receive Date: 20220422
  Receipt Date: 20220516
  Transmission Date: 20220721
  Serious: Yes (Hospitalization, Other)
  Sender: FDA-Public Use
  Company Number: US-BRISTOL-MYERS SQUIBB COMPANY-2022-020095

PATIENT
  Age: 56 Year
  Sex: Female
  Weight: 103.6 kg

DRUGS (15)
  1. POMALIDOMIDE [Suspect]
     Active Substance: POMALIDOMIDE
     Indication: Plasma cell myeloma
     Dosage: DAILY ON DAYS 1-21
  2. DEXAMETHASONE [Suspect]
     Active Substance: DEXAMETHASONE
     Indication: Plasma cell myeloma
  3. SELINEXOR [Suspect]
     Active Substance: SELINEXOR
     Indication: Plasma cell myeloma
     Dosage: GIVE DURATION) FROM/TO (OR BEST ESTIMATE)
     Route: 065
     Dates: start: 20210413
  4. SELINEXOR [Suspect]
     Active Substance: SELINEXOR
  5. SELINEXOR [Suspect]
     Active Substance: SELINEXOR
  6. SELINEXOR [Suspect]
     Active Substance: SELINEXOR
  7. SELINEXOR [Suspect]
     Active Substance: SELINEXOR
  8. SELINEXOR [Suspect]
     Active Substance: SELINEXOR
  9. IXAZOMIB [Suspect]
     Active Substance: IXAZOMIB
     Indication: Plasma cell myeloma
     Dosage: DAYS 1,8,15
  10. POTASSIUM CHLORIDE [Concomitant]
     Active Substance: POTASSIUM CHLORIDE
     Indication: Product used for unknown indication
     Dosage: 20MG EQ
     Route: 048
     Dates: start: 20191223
  11. ZOMETA [Concomitant]
     Active Substance: ZOLEDRONIC ACID
     Indication: Product used for unknown indication
     Route: 042
     Dates: start: 20200529
  12. ACYCLOVIR [Concomitant]
     Active Substance: ACYCLOVIR
     Indication: Product used for unknown indication
     Route: 048
     Dates: start: 20210501
  13. AMLODIPINE [Concomitant]
     Active Substance: AMLODIPINE BESYLATE
     Indication: Product used for unknown indication
     Route: 048
     Dates: start: 20210501
  14. VALACYCLOVIR [Concomitant]
     Active Substance: VALACYCLOVIR HYDROCHLORIDE
     Indication: Product used for unknown indication
     Route: 048
     Dates: start: 20210907
  15. DEUDEXTROMETHORPHAN [Concomitant]
     Active Substance: DEUDEXTROMETHORPHAN
     Indication: Product used for unknown indication
     Route: 048

REACTIONS (1)
  - Arthritis bacterial [Recovered/Resolved]

NARRATIVE: CASE EVENT DATE: 20220330
